FAERS Safety Report 15625608 (Version 3)
Quarter: 2019Q1

REPORT INFORMATION
  Report Type: Report from Study
  Country: None (occurrence: US)
  Receive Date: 20181116
  Receipt Date: 20190118
  Transmission Date: 20190417
  Serious: Yes (Hospitalization, Other)
  Sender: FDA-Public Use
  Company Number: US-ABBVIE-18K-163-2546930-00

PATIENT
  Age: 69 Year
  Sex: Female
  Weight: 101.7 kg

DRUGS (6)
  1. CLONAZEPAM. [Concomitant]
     Active Substance: CLONAZEPAM
     Indication: RESTLESS LEGS SYNDROME
  2. LEVOTHYROXINE. [Concomitant]
     Active Substance: LEVOTHYROXINE
     Indication: THYROID DISORDER
  3. HUMIRA [Suspect]
     Active Substance: ADALIMUMAB
     Indication: CROHN^S DISEASE
     Dosage: LOADING DOSE
     Route: 058
  4. BENADRYL [Concomitant]
     Active Substance: DIPHENHYDRAMINE HYDROCHLORIDE
     Indication: PROPHYLAXIS
  5. HUMIRA [Suspect]
     Active Substance: ADALIMUMAB
     Indication: PYODERMA GANGRENOSUM
     Route: 058
     Dates: start: 201802, end: 2018
  6. AMIODARONE [Concomitant]
     Active Substance: AMIODARONE
     Indication: ATRIAL FIBRILLATION

REACTIONS (17)
  - Nasal injury [Recovered/Resolved]
  - Blood sodium decreased [Recovering/Resolving]
  - Incision site complication [Recovered/Resolved]
  - Wound [Recovering/Resolving]
  - Procedural haemorrhage [Recovered/Resolved]
  - Pyoderma gangrenosum [Recovering/Resolving]
  - Wound secretion [Recovering/Resolving]
  - Arthropod bite [Recovered/Resolved]
  - Upper respiratory tract infection [Recovered/Resolved]
  - Erythema nodosum [Unknown]
  - Staphylococcal infection [Recovering/Resolving]
  - Anaemia [Not Recovered/Not Resolved]
  - Pain in extremity [Recovering/Resolving]
  - Fall [Recovered/Resolved]
  - Humerus fracture [Recovering/Resolving]
  - Skin fissures [Recovering/Resolving]
  - Wound dehiscence [Recovered/Resolved]

NARRATIVE: CASE EVENT DATE: 2018
